FAERS Safety Report 9403013 (Version 1)
Quarter: 2013Q3

REPORT INFORMATION
  Report Type: Report from Study
  Country: ES (occurrence: ES)
  Receive Date: 20130716
  Receipt Date: 20130716
  Transmission Date: 20140515
  Serious: Yes (Death)
  Sender: FDA-Public Use
  Company Number: ES-INCYTE CORPORATION-2013IN001519

PATIENT
  Age: 69 Year
  Sex: Male
  Weight: 85 kg

DRUGS (4)
  1. INC424 [Suspect]
     Indication: MYELOFIBROSIS
     Dosage: 50 MG, QD
     Route: 048
     Dates: start: 20111130, end: 20130624
  2. ADIRO [Concomitant]
     Dosage: UNK
     Dates: start: 200502, end: 20130624
  3. ZYLORIC [Concomitant]
     Dosage: UNK
     Dates: start: 2000, end: 20130624
  4. ACFOL [Concomitant]
     Dosage: UNK
     Dates: start: 20120125, end: 20130624

REACTIONS (1)
  - Sudden death [Fatal]
